FAERS Safety Report 8922882 (Version 1)
Quarter: 2012Q4

REPORT INFORMATION
  Report Type: Spontaneous
  Country: ES (occurrence: None)
  Receive Date: 20121109
  Receipt Date: 20121109
  Transmission Date: 20130627
  Serious: Yes (Hospitalization)
  Sender: FDA-Public Use
  Company Number: 2011S1000950

PATIENT
  Age: 78 Year
  Sex: Male

DRUGS (8)
  1. CUBICIN [Suspect]
     Indication: ENDOCARDITIS
     Route: 042
     Dates: start: 20110513, end: 20110530
  2. SIMVASTATIN [Concomitant]
  3. PANTOPRAZOLE [Concomitant]
  4. FENTANYL [Concomitant]
  5. ENALAPRIL [Concomitant]
  6. BISOPROLOL [Concomitant]
  7. ALLOPURINOL [Concomitant]
  8. ACETYLSALICYLIC ACID [Concomitant]

REACTIONS (4)
  - Renal failure acute [None]
  - Drug reaction with eosinophilia and systemic symptoms [None]
  - Lung infiltration [None]
  - Liver disorder [None]
